FAERS Safety Report 7031628-0 (Version None)
Quarter: 2010Q4

REPORT INFORMATION
  Report Type: 
  Country: None (occurrence: None)
  Receive Date: 20101006
  Receipt Date: 20101006
  Transmission Date: 20110411
  Serious: Yes (Hospitalization)
  Sender: FDA-Public Use
  Company Number: None

PATIENT
  Sex: Female
  Weight: 68.2 kg

DRUGS (2)
  1. CARBOPLATIN [Suspect]
     Dosage: 541 MG
     Dates: end: 20100902
  2. TAXOL [Suspect]
     Dosage: 140 MG
     Dates: end: 20100902

REACTIONS (2)
  - NAUSEA [None]
  - VOMITING [None]
